FAERS Safety Report 13936042 (Version 1)
Quarter: 2017Q3

REPORT INFORMATION
  Report Type: Spontaneous
  Country: US (occurrence: None)
  Receive Date: 20170905
  Receipt Date: 20170905
  Transmission Date: 20171127
  Serious: No
  Sender: FDA-Public Use
  Company Number: None

PATIENT
  Age: 60 Year
  Sex: Male

DRUGS (14)
  1. LOSARTAN. [Concomitant]
     Active Substance: LOSARTAN
  2. GAVILYTE [Concomitant]
  3. CARVEDILOL. [Concomitant]
     Active Substance: CARVEDILOL
  4. SOMAVERT [Suspect]
     Active Substance: PEGVISOMANT
     Indication: ACROMEGALY
     Route: 058
     Dates: start: 20141205
  5. BUPROPION. [Concomitant]
     Active Substance: BUPROPION
  6. SPIRONOLACTONE. [Concomitant]
     Active Substance: SPIRONOLACTONE
  7. DULOXETINE. [Concomitant]
     Active Substance: DULOXETINE
  8. FUROSEMIDE. [Concomitant]
     Active Substance: FUROSEMIDE
  9. AXIRON [Concomitant]
     Active Substance: TESTOSTERONE
  10. CLONAZEPAM. [Concomitant]
     Active Substance: CLONAZEPAM
  11. METHIMAZOLE. [Concomitant]
     Active Substance: METHIMAZOLE
  12. POLYETH GLYCOL [Concomitant]
  13. SOMAVERT [Suspect]
     Active Substance: PEGVISOMANT
     Indication: GIGANTISM
     Route: 058
     Dates: start: 20141205
  14. AMIODARONE [Concomitant]
     Active Substance: AMIODARONE

REACTIONS (2)
  - Drug dose omission [None]
  - Incorrect dose administered [None]

NARRATIVE: CASE EVENT DATE: 201708
